FAERS Safety Report 21450471 (Version 1)
Quarter: 2022Q4

REPORT INFORMATION
  Report Type: Spontaneous
  Country: US (occurrence: None)
  Receive Date: 20221012
  Receipt Date: 20221012
  Transmission Date: 20230113
  Serious: Yes (Hospitalization)
  Sender: FDA-Public Use
  Company Number: None

PATIENT
  Sex: Female

DRUGS (8)
  1. SIMPONI [Suspect]
     Active Substance: GOLIMUMAB
     Indication: Rheumatoid arthritis
     Dosage: OTHER QUANTITY : 50 MG/0.5ML;?FREQUENCY : MONTHLY;?
     Route: 058
     Dates: start: 20210309
  2. SIMPONI [Suspect]
     Active Substance: GOLIMUMAB
     Dosage: FREQUENCY : MONTHLY;?
     Route: 058
  3. BENZONATATE [Concomitant]
     Active Substance: BENZONATATE
  4. FAMOTIDINE [Concomitant]
     Active Substance: FAMOTIDINE
  5. ACETAMINOPHEN\HYDROCODONE [Concomitant]
     Active Substance: ACETAMINOPHEN\HYDROCODONE
  6. LIOTHYRONINE [Concomitant]
     Active Substance: LIOTHYRONINE
  7. METHYLPREDNISOLONE [Concomitant]
     Active Substance: METHYLPREDNISOLONE
  8. SPIRONOLACTONE [Concomitant]
     Active Substance: SPIRONOLACTONE

REACTIONS (4)
  - Condition aggravated [None]
  - Loss of personal independence in daily activities [None]
  - Pain [None]
  - Alopecia [None]
